FAERS Safety Report 5106316-8 (Version None)
Quarter: 2006Q3

REPORT INFORMATION
  Report Type: 
  Country: None (occurrence: None)
  Receive Date: 20060918
  Receipt Date: 20060905
  Transmission Date: 20061208
  Serious: Yes (Congenital Anomaly)
  Sender: FDA-Public Use
  Company Number: IL-JNJFOC-20060901464

PATIENT
  Sex: Female
  Weight: 2.44 kg

DRUGS (1)
  1. TOPAMAX [Suspect]
     Indication: DRUG USE FOR UNKNOWN INDICATION

REACTIONS (4)
  - FEEDING DISORDER [None]
  - HYPOREFLEXIA [None]
  - HYPOTONIA [None]
  - SYRINGOMYELIA [None]
